FAERS Safety Report 5190221-5 (Version None)
Quarter: 2006Q4

REPORT INFORMATION
  Report Type: 
  Country: None (occurrence: None)
  Receive Date: 20061222
  Receipt Date: 20061030
  Transmission Date: 20070319
  Serious: No
  Sender: FDA-Public Use
  Company Number: US-AMGEN-US198554

PATIENT
  Age: 75 Year
  Sex: Female

DRUGS (2)
  1. ARANESP [Suspect]
     Dates: start: 20060101
  2. PACLITAXEL [Concomitant]

REACTIONS (5)
  - DEPRESSION [None]
  - DISTURBANCE IN ATTENTION [None]
  - FATIGUE [None]
  - NEUROPATHY [None]
  - VISUAL DISTURBANCE [None]
